FAERS Safety Report 25919323 (Version 2)
Quarter: 2025Q4

REPORT INFORMATION
  Report Type: Report from Study
  Country: US (occurrence: None)
  Receive Date: 20251014
  Receipt Date: 20251030
  Transmission Date: 20260117
  Serious: Yes (Other)
  Sender: UCB
  Company Number: US-UCBSA-2025063958

PATIENT
  Age: 16 Year
  Weight: 64.86 kg

DRUGS (1)
  1. FENFLURAMINE [Suspect]
     Active Substance: FENFLURAMINE
     Indication: Product used for unknown indication
     Dosage: 26 MILLIGRAM PER DAY, 0.7 MG/KG/DAY

REACTIONS (1)
  - Mitral valve incompetence [Unknown]
